FAERS Safety Report 7791021-X (Version None)
Quarter: 2011Q4

REPORT INFORMATION
  Report Type: 
  Country: None (occurrence: None)
  Receive Date: 20111003
  Receipt Date: 20110928
  Transmission Date: 20120403
  Serious: Yes (Hospitalization)
  Sender: FDA-Public Use
  Company Number: US-BIOGENIDEC-2011BI028460

PATIENT
  Sex: Female

DRUGS (1)
  1. TYSABRI [Suspect]
     Indication: MULTIPLE SCLEROSIS
     Route: 042
     Dates: start: 20090119

REACTIONS (6)
  - KNEE OPERATION [None]
  - FALL [None]
  - LOSS OF CONTROL OF LEGS [None]
  - LIGAMENT SPRAIN [None]
  - LIGAMENT RUPTURE [None]
  - MENTAL IMPAIRMENT [None]
